FAERS Safety Report 11089427 (Version 1)
Quarter: 2015Q2

REPORT INFORMATION
  Report Type: Report from Study
  Country: US (occurrence: US)
  Receive Date: 20150505
  Receipt Date: 20150505
  Transmission Date: 20150821
  Serious: Yes (Other)
  Sender: FDA-Public Use
  Company Number: US-ACCORD-030407

PATIENT
  Age: 18 Year
  Sex: Female

DRUGS (1)
  1. TOPIRAMATE. [Suspect]
     Active Substance: TOPIRAMATE
     Indication: MIGRAINE

REACTIONS (9)
  - Eating disorder [Unknown]
  - Sleep disorder [Unknown]
  - Pain [Unknown]
  - Condition aggravated [Unknown]
  - Oligomenorrhoea [Unknown]
  - Contusion [Unknown]
  - Temperature intolerance [Unknown]
  - Fatigue [Unknown]
  - Off label use [Unknown]
